FAERS Safety Report 20887963 (Version 4)
Quarter: 2022Q4

REPORT INFORMATION
  Report Type: Spontaneous
  Country: CH (occurrence: CH)
  Receive Date: 20220529
  Receipt Date: 20221024
  Transmission Date: 20230113
  Serious: Yes (Other)
  Sender: FDA-Public Use
  Company Number: CH-CELGENE-CHE-20210203098

PATIENT
  Age: 34 Year

DRUGS (8)
  1. ZEPOSIA [Suspect]
     Active Substance: OZANIMOD HYDROCHLORIDE
     Indication: Multiple sclerosis
     Dosage: 0.92
     Route: 048
     Dates: start: 20201001
  2. ZEPOSIA [Suspect]
     Active Substance: OZANIMOD HYDROCHLORIDE
     Dosage: 0.92 MILLIGRAM
     Route: 048
     Dates: start: 20201201
  3. CORTISONE [Concomitant]
     Active Substance: CORTISONE
     Indication: Hypoaesthesia
     Dosage: FREQUENCY TEXT: NOT PROVIDED
     Route: 042
     Dates: start: 202009
  4. CORTISONE [Concomitant]
     Active Substance: CORTISONE
     Dosage: FREQUENCY TEXT: NOT PROVIDED
     Route: 065
     Dates: start: 202012
  5. CORTISONE [Concomitant]
     Active Substance: CORTISONE
     Dosage: FREQUENCY TEXT: NOT PROVIDED
     Route: 065
     Dates: start: 2021
  6. CORTICOSTEROID NOS [Concomitant]
     Active Substance: CORTICOSTEROID NOS
     Indication: Product used for unknown indication
     Dosage: FREQUENCY: THE FEMALE PATIENT HAS TAKEN STEROIDS FOR 3 DAYS
     Route: 065
  7. CORTICOSTEROID NOS [Concomitant]
     Active Substance: CORTICOSTEROID NOS
     Dosage: FREQUENCY: THE FEMALE PATIENT HAS TAKEN STEROIDS FOR 3 DAYS
     Route: 065
  8. PIROXICAM [Concomitant]
     Active Substance: PIROXICAM
     Indication: Product used for unknown indication
     Dosage: FREQUENCY: DAILY 2X2
     Route: 065
     Dates: start: 20210205

REACTIONS (11)
  - Multiple sclerosis [Not Recovered/Not Resolved]
  - Optic neuritis [Recovering/Resolving]
  - Pneumonia [Recovered/Resolved]
  - Dizziness [Not Recovered/Not Resolved]
  - Nausea [Not Recovered/Not Resolved]
  - Vomiting [Recovered/Resolved]
  - Hypoaesthesia [Recovering/Resolving]
  - Visual acuity reduced [Unknown]
  - Chronic obstructive pulmonary disease [Recovering/Resolving]
  - Heart rate decreased [Recovered/Resolved]
  - Blood pressure increased [Recovered/Resolved]

NARRATIVE: CASE EVENT DATE: 20210101
